FAERS Safety Report 24537731 (Version 1)
Quarter: 2024Q4

REPORT INFORMATION
  Report Type: Spontaneous
  Country: US (occurrence: US)
  Receive Date: 20241023
  Receipt Date: 20241023
  Transmission Date: 20250115
  Serious: No
  Sender: AMGEN
  Company Number: US-AMGEN-USASP2024204984

PATIENT
  Age: 74 Year
  Sex: Female

DRUGS (1)
  1. REPATHA [Suspect]
     Active Substance: EVOLOCUMAB
     Indication: Blood cholesterol increased
     Dosage: 140 MILLIGRAM,EVERY 14/15/16 DAYS
     Route: 065
     Dates: start: 202408

REACTIONS (1)
  - Renal pain [Unknown]

NARRATIVE: CASE EVENT DATE: 20240901
